FAERS Safety Report 9226139 (Version 2)
Quarter: 2013Q2

REPORT INFORMATION
  Report Type: Report from Study
  Country: DE (occurrence: DE)
  Receive Date: 20130411
  Receipt Date: 20130424
  Transmission Date: 20140414
  Serious: Yes (Hospitalization, Other)
  Sender: FDA-Public Use
  Company Number: DE-ABBOTT-13P-062-1073685-00

PATIENT
  Age: 40 Year
  Sex: Male
  Weight: 100 kg

DRUGS (6)
  1. HUMIRA [Suspect]
     Indication: PSORIASIS
     Route: 058
  2. BEZAFIBRAT [Concomitant]
     Indication: HYPERTRIGLYCERIDAEMIA
     Route: 048
  3. CANDESARTAN [Concomitant]
     Indication: HYPERTENSION
     Route: 048
     Dates: start: 201106
  4. LEVOTHYROXINE [Concomitant]
     Indication: THYROIDECTOMY
     Route: 048
     Dates: start: 201112
  5. OMNIC [Concomitant]
     Indication: PRODUCT USED FOR UNKNOWN INDICATION
  6. NEBIDO [Concomitant]
     Indication: ANDROGEN DEFICIENCY

REACTIONS (6)
  - Epididymitis [Recovered/Resolved]
  - Oliguria [Recovered/Resolved]
  - Urogenital haemorrhage [Recovered/Resolved]
  - Testicular pain [Recovered/Resolved]
  - Cystitis [Recovered/Resolved]
  - Bacterial test positive [Unknown]
